FAERS Safety Report 24820349 (Version 2)
Quarter: 2025Q1

REPORT INFORMATION
  Report Type: Spontaneous
  Country: CN (occurrence: CN)
  Receive Date: 20250108
  Receipt Date: 20250115
  Transmission Date: 20250408
  Serious: Yes (Hospitalization, Other)
  Sender: MERCK
  Company Number: CN-009507513-2501CHN001295

PATIENT
  Age: 70 Year
  Sex: Female
  Weight: 60 kg

DRUGS (2)
  1. CILASTATIN SODIUM\IMIPENEM [Suspect]
     Active Substance: CILASTATIN SODIUM\IMIPENEM
     Indication: Anti-infective therapy
     Dosage: 1 G QID
     Route: 041
     Dates: start: 20241224, end: 20241226
  2. SODIUM CHLORIDE [Concomitant]
     Active Substance: SODIUM CHLORIDE
     Indication: Cerebral haemorrhage
     Dosage: 100 ML QID
     Route: 041
     Dates: start: 20241224, end: 20241226

REACTIONS (4)
  - Diarrhoea [Recovering/Resolving]
  - Cerebral haemorrhage [Unknown]
  - Enteral nutrition [Unknown]
  - Expired product administered [Unknown]

NARRATIVE: CASE EVENT DATE: 20241201
